FAERS Safety Report 8457595-0 (Version None)
Quarter: 2012Q2

REPORT INFORMATION
  Report Type: 
  Country: None (occurrence: None)
  Receive Date: 20120622
  Receipt Date: 20120613
  Transmission Date: 20120825
  Serious: No
  Sender: FDA-Public Use
  Company Number: US-BIOGENIDEC-2012BI021089

PATIENT
  Age: 48 Year
  Sex: Female

DRUGS (1)
  1. AVONEX [Suspect]
     Indication: MULTIPLE SCLEROSIS
     Route: 030
     Dates: start: 20011001

REACTIONS (5)
  - EXOSTOSIS [None]
  - BALANCE DISORDER [None]
  - INFLUENZA LIKE ILLNESS [None]
  - FALL [None]
  - FOOT FRACTURE [None]
